FAERS Safety Report 15822787 (Version 4)
Quarter: 2019Q3

REPORT INFORMATION
  Report Type: Spontaneous
  Country: FR (occurrence: FR)
  Receive Date: 20190114
  Receipt Date: 20190710
  Transmission Date: 20191004
  Serious: Yes (Hospitalization, Disabling, Other)
  Sender: FDA-Public Use
  Company Number: FR-ABBVIE-19K-056-2622070-00

PATIENT
  Sex: Male
  Weight: 96 kg

DRUGS (4)
  1. HUMIRA [Suspect]
     Active Substance: ADALIMUMAB
     Indication: RHEUMATOID ARTHRITIS
     Route: 058
     Dates: start: 201706, end: 201812
  2. SOLU-MEDROL [Suspect]
     Active Substance: METHYLPREDNISOLONE SODIUM SUCCINATE
     Indication: POLYNEUROPATHY
     Route: 065
     Dates: start: 20190419, end: 20190424
  3. SOLU-MEDROL [Suspect]
     Active Substance: METHYLPREDNISOLONE SODIUM SUCCINATE
     Route: 065
     Dates: start: 20190524, end: 20190527
  4. METHOTREXATE. [Concomitant]
     Active Substance: METHOTREXATE
     Indication: RHEUMATOID ARTHRITIS

REACTIONS (14)
  - Ataxia [Unknown]
  - Hypoaesthesia [Unknown]
  - Erectile dysfunction [Unknown]
  - Hyperglycaemia [Unknown]
  - Brachial plexopathy [Unknown]
  - Vitamin D deficiency [Unknown]
  - Polyneuropathy [Not Recovered/Not Resolved]
  - Benign neoplasm [Unknown]
  - Vitamin B6 deficiency [Unknown]
  - Balance disorder [Not Recovered/Not Resolved]
  - Hyperhidrosis [Unknown]
  - Muscle contractions involuntary [Unknown]
  - Neutrophilia [Unknown]
  - Paraesthesia [Unknown]

NARRATIVE: CASE EVENT DATE: 2018
